FAERS Safety Report 7347411-2 (Version None)
Quarter: 2011Q1

REPORT INFORMATION
  Report Type: 
  Country: None (occurrence: None)
  Receive Date: 20110311
  Receipt Date: 20110308
  Transmission Date: 20110831
  Serious: Yes (Hospitalization)
  Sender: FDA-Public Use
  Company Number: CH-ROCHE-764372

PATIENT
  Age: 67 Year
  Sex: Female
  Weight: 80 kg

DRUGS (1)
  1. HERCEPTIN [Suspect]
     Dosage: FREQUENCY: 1 PER 1 CYCLIC
     Route: 041
     Dates: start: 20101012, end: 20110113

REACTIONS (2)
  - SYNCOPE [None]
  - FALL [None]
